FAERS Safety Report 7700250-2 (Version None)
Quarter: 2011Q3

REPORT INFORMATION
  Report Type: 
  Country: None (occurrence: None)
  Receive Date: 20110822
  Receipt Date: 20110426
  Transmission Date: 20111222
  Serious: Yes (Death)
  Sender: FDA-Public Use
  Company Number: US-AMGEN-USASP2011014113

PATIENT
  Age: 65 Year
  Sex: Female

DRUGS (2)
  1. NPLATE [Suspect]
     Indication: IDIOPATHIC THROMBOCYTOPENIC PURPURA
     Dates: start: 20101111
  2. CORTICOSTEROIDS [Concomitant]
     Dosage: UNK
     Dates: start: 20100518

REACTIONS (1)
  - DEATH [None]
